FAERS Safety Report 19809205 (Version 1)
Quarter: 2021Q3

REPORT INFORMATION
  Report Type: Spontaneous
  Country: US (occurrence: US)
  Receive Date: 20210909
  Receipt Date: 20210909
  Transmission Date: 20211014
  Serious: Yes (Other)
  Sender: FDA-Public Use
  Company Number: None

PATIENT
  Age: 63 Year
  Sex: Female
  Weight: 139.1 kg

DRUGS (10)
  1. TRAZODONE 100MG DAILY [Concomitant]
  2. LISINOPRIL?HYDROCHLOROTHIAZIDE 20?12.5 MG DAILY [Concomitant]
  3. AMLODIPINE 5MG DAILY [Concomitant]
  4. INFED [Suspect]
     Active Substance: IRON DEXTRAN
     Indication: MICROCYTIC ANAEMIA
     Dosage: ?          OTHER FREQUENCY:ONCE;?
     Route: 041
     Dates: start: 20210824, end: 20210824
  5. CYMBALTA 120MG DAILY [Concomitant]
  6. ABILIFY 10MG DAILY [Concomitant]
  7. TOPROL XL 50MG DAILY [Concomitant]
  8. FERREX 150MG TID [Concomitant]
  9. PRAZOSIN 2MG DAILY [Concomitant]
  10. LIPITOR 80MG DAILY [Concomitant]

REACTIONS (5)
  - Oxygen saturation decreased [None]
  - Chest discomfort [None]
  - Cough [None]
  - Dyspnoea [None]
  - Flushing [None]

NARRATIVE: CASE EVENT DATE: 20210824
